FAERS Safety Report 8258636-6 (Version None)
Quarter: 2012Q2

REPORT INFORMATION
  Report Type: 
  Country: None (occurrence: None)
  Receive Date: 20120404
  Receipt Date: 20120321
  Transmission Date: 20120825
  Serious: Yes (Hospitalization, Other)
  Sender: FDA-Public Use
  Company Number: TR-RANBAXY-2012RR-55232

PATIENT
  Age: 34 Year
  Sex: Female

DRUGS (2)
  1. METFORMIN HCL [Suspect]
     Indication: SUICIDE ATTEMPT
     Dosage: 1000 MG, UNK
     Route: 048
  2. SERTRALINE HYDROCHLORIDE [Suspect]
     Indication: SUICIDE ATTEMPT
     Dosage: 50 MG, UNK
     Route: 048

REACTIONS (2)
  - LACTIC ACIDOSIS [None]
  - OVERDOSE [None]
